FAERS Safety Report 6587965-7 (Version None)
Quarter: 2010Q1

REPORT INFORMATION
  Report Type: 
  Country: None (occurrence: None)
  Receive Date: 20100218
  Receipt Date: 20100215
  Transmission Date: 20100710
  Serious: Yes (Other)
  Sender: FDA-Public Use
  Company Number: GB-BRISTOL-MYERS SQUIBB COMPANY-14977433

PATIENT
  Sex: Male
  Weight: 124 kg

DRUGS (1)
  1. ARIPIPRAZOLE [Suspect]
     Indication: SCHIZOPHRENIA
     Route: 048
     Dates: start: 20080101

REACTIONS (2)
  - HYPNAGOGIC HALLUCINATION [None]
  - HYPNOPOMPIC HALLUCINATION [None]
